FAERS Safety Report 8176077-7 (Version None)
Quarter: 2012Q1

REPORT INFORMATION
  Report Type: 
  Country: None (occurrence: None)
  Receive Date: 20120301
  Receipt Date: 20120222
  Transmission Date: 20120608
  Serious: Yes (Hospitalization, Other)
  Sender: FDA-Public Use
  Company Number: US-US-EMD SERONO, INC.-7048259

PATIENT
  Sex: Female
  Weight: 110 kg

DRUGS (28)
  1. SYNTHROID [Concomitant]
     Indication: THYROID DISORDER
     Dosage: IN THE AM
     Route: 048
  2. DEMEROL [Concomitant]
     Indication: FIBROMYALGIA
     Route: 048
  3. ATIVAN [Concomitant]
  4. AMBIEN [Concomitant]
     Indication: SLEEP DISORDER
     Dosage: AT BEDTIME
     Route: 048
  5. COMPAZINE [Concomitant]
     Indication: MIGRAINE
     Route: 048
  6. KEPPRA [Concomitant]
     Indication: EPILEPSY
  7. TEGRETOL-XR [Concomitant]
     Indication: EPILEPSY
     Route: 048
  8. DETROL LA [Concomitant]
     Indication: URINARY INCONTINENCE
     Dosage: AT BEDTIME
     Route: 048
  9. ANTIVERT [Concomitant]
     Indication: DIZZINESS
  10. CRESTOR [Concomitant]
     Indication: BLOOD CHOLESTEROL INCREASED
     Dosage: AT BEDTIME
     Route: 048
  11. BENADRYL [Concomitant]
     Indication: MIGRAINE
  12. COLACE [Concomitant]
     Indication: CONSTIPATION
  13. TOPIRAMATE [Concomitant]
     Indication: HEADACHE
  14. ELAVIL [Concomitant]
     Indication: SLEEP DISORDER
     Dosage: AT BEDTIME
     Route: 048
  15. NEURONTIN [Concomitant]
     Indication: NEURALGIA
  16. SEROQUEL [Concomitant]
     Indication: DEPRESSION
     Dosage: AT BEDTIME
     Route: 048
  17. NYSTATIN [Concomitant]
     Route: 061
  18. TEGRETOL-XR [Concomitant]
     Indication: NEURALGIA
  19. NEXIUM [Concomitant]
     Indication: GASTROOESOPHAGEAL REFLUX DISEASE
     Dosage: AT BEDTIME
     Route: 048
  20. ATARAX [Concomitant]
     Indication: ANXIETY
     Route: 048
  21. REBIF [Suspect]
     Indication: MULTIPLE SCLEROSIS
     Route: 058
     Dates: start: 20071217
  22. NEURONTIN [Concomitant]
     Indication: CONVULSION
  23. VALIUM [Concomitant]
     Indication: ANXIETY
     Route: 048
  24. LISINOPRIL [Concomitant]
  25. NOVOLOG [Concomitant]
  26. CYMBALTA [Concomitant]
     Indication: DEPRESSION
     Dosage: AT BEDTIME
     Route: 048
  27. ZOFRAN [Concomitant]
     Indication: NAUSEA
     Dosage: ONCE EVERY FOUR HOURS
  28. ATENOLOL [Concomitant]

REACTIONS (9)
  - PARAESTHESIA ORAL [None]
  - BLOOD GLUCOSE INCREASED [None]
  - HYPERAESTHESIA [None]
  - DYSARTHRIA [None]
  - STAPHYLOCOCCAL INFECTION [None]
  - INFLUENZA LIKE ILLNESS [None]
  - MULTIPLE SCLEROSIS RELAPSE [None]
  - STRESS [None]
  - INJECTION SITE REACTION [None]
